FAERS Safety Report 10452157 (Version 3)
Quarter: 2014Q4

REPORT INFORMATION
  Report Type: Spontaneous
  Country: SE (occurrence: None)
  Receive Date: 20140911
  Receipt Date: 20141218
  Transmission Date: 20150528
  Serious: Yes (Hospitalization)
  Sender: FDA-Public Use
  Company Number: 2014AP004415

PATIENT
  Age: 78 Year
  Sex: Male

DRUGS (1)
  1. FERRIPROX [Suspect]
     Active Substance: DEFERIPRONE
     Indication: MYELODYSPLASTIC SYNDROME
     Route: 048

REACTIONS (1)
  - Arthritis [None]

NARRATIVE: CASE EVENT DATE: 20140822
